FAERS Safety Report 10552947 (Version 2)
Quarter: 2014Q4

REPORT INFORMATION
  Report Type: Report from Study
  Country: DE (occurrence: TR)
  Receive Date: 20141029
  Receipt Date: 20141230
  Transmission Date: 20150529
  Serious: Yes (Death, Hospitalization)
  Sender: FDA-Public Use
  Company Number: DE-ACTELION-A-US2014-107449

PATIENT
  Age: 36 Year
  Sex: Female

DRUGS (2)
  1. VENTAVIS [Suspect]
     Active Substance: ILOPROST
     Indication: PULMONARY HYPERTENSION
     Dosage: 1 DF, Q4HRS
     Route: 055
     Dates: start: 20141020, end: 20141022
  2. VENTAVIS [Suspect]
     Active Substance: ILOPROST
     Dosage: UNK, Q4HRS
     Route: 055
     Dates: start: 2014, end: 2014

REACTIONS (7)
  - Chest discomfort [Fatal]
  - Respiratory distress [Fatal]
  - Pulmonary hypertension [Fatal]
  - Pyrexia [Fatal]
  - Hypertension [Fatal]
  - Dyspnoea [Fatal]
  - Carbon dioxide increased [Fatal]

NARRATIVE: CASE EVENT DATE: 201410
